FAERS Safety Report 9637765 (Version 1)
Quarter: 2013Q4

REPORT INFORMATION
  Report Type: Spontaneous
  Country: GB (occurrence: None)
  Receive Date: 20131018
  Receipt Date: 20131018
  Transmission Date: 20140711
  Serious: Yes (Other)
  Sender: FDA-Public Use
  Company Number: AUR-APL-2013-08548

PATIENT
  Age: 49 Year
  Sex: Male
  Weight: 80 kg

DRUGS (4)
  1. MONTELUKAST (MONTELUKAST) [Suspect]
     Indication: ASTHMA
     Route: 048
     Dates: start: 20120814
  2. HYDROXYZINE [Concomitant]
  3. OMPERAZOLE [Concomitant]
  4. SERETIDE [Concomitant]

REACTIONS (1)
  - Gingival recession [None]
